FAERS Safety Report 23523512 (Version 2)
Quarter: 2024Q1

REPORT INFORMATION
  Report Type: Spontaneous
  Country: BR (occurrence: BR)
  Receive Date: 20240214
  Receipt Date: 20240228
  Transmission Date: 20240409
  Serious: No
  Sender: FDA-Public Use
  Company Number: BR-AMERICAN REGENT INC-2024000478

PATIENT
  Age: 50 Year
  Sex: Female
  Weight: 69 kg

DRUGS (3)
  1. VENOFER [Suspect]
     Active Substance: IRON SUCROSE
     Indication: Mineral supplementation
     Dosage: 200 MILLIGRAM (2 AMPOULES) EVERY 15 DAYS FOR TWO MONTHS (200 MG, 1 IN 15 D)
     Dates: start: 202309, end: 202310
  2. VENOFER [Suspect]
     Active Substance: IRON SUCROSE
     Indication: Serum ferritin decreased
     Dosage: 100 MILLIGRAM (1 AMPOULE), 1 IN 1 MONTH DILUTED IN 500 ML OF SALINE SOLUTION (100 MG, 1 IN 1 M)
     Dates: start: 20240201, end: 20240201
  3. VITAMIN D NOS [Concomitant]
     Active Substance: VITAMIN D NOS
     Indication: Vitamin D decreased
     Dosage: 1 TABLET (7000 IU) STARTED 1 AND A HALF YEARS AGO AND ONGOING (7000 !U, 1 IN 1 WK)
     Route: 048
     Dates: start: 2022

REACTIONS (9)
  - Hypokinesia [Recovered/Resolved]
  - Injected limb mobility decreased [Not Recovered/Not Resolved]
  - Hypoaesthesia [Unknown]
  - Infusion site swelling [Not Recovered/Not Resolved]
  - Blood pressure decreased [Recovered/Resolved]
  - Infusion site pain [Unknown]
  - Pain in extremity [Not Recovered/Not Resolved]
  - Product preparation issue [Unknown]
  - Product administration interrupted [Unknown]

NARRATIVE: CASE EVENT DATE: 20230901
